FAERS Safety Report 24207572 (Version 2)
Quarter: 2024Q3

REPORT INFORMATION
  Report Type: Spontaneous
  Country: EG (occurrence: EG)
  Receive Date: 20240814
  Receipt Date: 20240823
  Transmission Date: 20241017
  Serious: Yes (Hospitalization, Other)
  Sender: NOVO NORDISK
  Company Number: EG-NOVOPROD-1266036

PATIENT
  Age: 494 Month
  Sex: Male
  Weight: 54 kg

DRUGS (10)
  1. TRESIBA [Suspect]
     Active Substance: INSULIN DEGLUDEC
     Dosage: 6 IU, QD (NOW TAKES THIS DOSE AT NIGHT)
     Route: 058
  2. TRESIBA [Suspect]
     Active Substance: INSULIN DEGLUDEC
     Dosage: 10 IU, QD
     Route: 058
  3. TRESIBA [Suspect]
     Active Substance: INSULIN DEGLUDEC
     Indication: Type 1 diabetes mellitus
     Dosage: 7 IU, QD
     Route: 058
     Dates: start: 2017
  4. B-COM [Concomitant]
     Indication: Vitamin supplementation
     Dosage: UNK ONCE/ EVERY KIDNEY DIALYSIS SESSION
     Route: 042
  5. ERYTHROPOIETIN [Concomitant]
     Active Substance: ERYTHROPOIETIN
     Indication: Anaemia
     Dosage: UNK, HAD COURSE FOR 8 TO 16 SYRINGES/ EVERY DIALYSIS SESSION THEN SHIFTED TO RECORMON
     Route: 058
  6. FAWAR FRUIT [Concomitant]
     Indication: Dyspepsia
     Dosage: UNK
     Route: 048
  7. FLAGYL [Concomitant]
     Active Substance: METRONIDAZOLE\METRONIDAZOLE HYDROCHLORIDE
     Indication: Product used for unknown indication
     Dosage: UNK,IF NEED
     Route: 048
  8. L CARNITINE [LEVOCARNITINE] [Concomitant]
     Indication: Vitamin supplementation
     Dosage: ONCE/ EVERY KIDNEY DIALYSIS SESSION
     Route: 042
  9. MARCAL [Concomitant]
     Indication: Mineral supplementation
     Dosage: WITH DOSE 6 TABS/DAY BY 2 TABS DURING EVERY MEAL THEN STOPPED F
     Route: 048
  10. OMEGA 3 6 9 [BORAGO OFFICINALIS OIL;DL-ALPHA TOCOPHERYL ACETATE;FISH O [Concomitant]
     Indication: Supplementation therapy
     Dosage: 1 TAB/DAY
     Route: 048

REACTIONS (3)
  - Foot amputation [Recovered/Resolved]
  - Dialysis [Not Recovered/Not Resolved]
  - Hyperglycaemia [Not Recovered/Not Resolved]

NARRATIVE: CASE EVENT DATE: 20190101
